FAERS Safety Report 5290599-8 (Version None)
Quarter: 2007Q2

REPORT INFORMATION
  Report Type: 
  Country: None (occurrence: None)
  Receive Date: 20070405
  Receipt Date: 20070405
  Transmission Date: 20071010
  Serious: No
  Sender: FDA-Public Use
  Company Number: None

PATIENT
  Weight: 95.2554 kg

DRUGS (1)
  1. PHENTERMINE [Suspect]
     Indication: WEIGHT DECREASED
     Dosage: 37.5 MG ONCE DAILY
     Dates: start: 20061001, end: 20070101

REACTIONS (6)
  - DIZZINESS [None]
  - HEADACHE [None]
  - INSOMNIA [None]
  - MIGRAINE [None]
  - NAUSEA [None]
  - PAIN [None]
